FAERS Safety Report 6786915-8 (Version None)
Quarter: 2010Q2

REPORT INFORMATION
  Report Type: 
  Country: None (occurrence: None)
  Receive Date: 20100623
  Receipt Date: 20100610
  Transmission Date: 20101027
  Serious: Yes (Hospitalization)
  Sender: FDA-Public Use
  Company Number: US-CELGENEUS-163-20785-10062007

PATIENT
  Sex: Female

DRUGS (4)
  1. THALOMID [Suspect]
     Indication: MULTIPLE MYELOMA
     Route: 048
     Dates: start: 20091223, end: 20100301
  2. VELCADE [Concomitant]
     Indication: MULTIPLE MYELOMA
     Route: 051
     Dates: start: 20091117, end: 20100114
  3. VELCADE [Concomitant]
     Route: 051
     Dates: end: 20100301
  4. DECADRON [Concomitant]
     Indication: MULTIPLE MYELOMA
     Route: 065

REACTIONS (5)
  - ACUTE RESPIRATORY FAILURE [None]
  - ANAEMIA [None]
  - BACK PAIN [None]
  - BRONCHITIS [None]
  - NEUROPATHY PERIPHERAL [None]
